FAERS Safety Report 9296577 (Version 1)
Quarter: 2013Q2

REPORT INFORMATION
  Report Type: Spontaneous
  Country: US (occurrence: US)
  Receive Date: 20130517
  Receipt Date: 20130517
  Transmission Date: 20140414
  Serious: No
  Sender: FDA-Public Use
  Company Number: US-ASTRAZENECA-2013SE32064

PATIENT
  Age: 63 Year
  Sex: Female
  Weight: 64.4 kg

DRUGS (4)
  1. NEXIUM [Suspect]
     Indication: GASTROOESOPHAGEAL REFLUX DISEASE
     Route: 048
     Dates: start: 2004
  2. NEXIUM [Suspect]
     Indication: GASTROOESOPHAGEAL REFLUX DISEASE
     Route: 048
     Dates: end: 2011
  3. DEXILANT [Suspect]
     Indication: GASTROOESOPHAGEAL REFLUX DISEASE
     Route: 065
  4. ALPRAZOLAM [Concomitant]
     Indication: ANXIETY
     Dosage: .25MG 1/2 DAILY
     Route: 048

REACTIONS (6)
  - Pain [Unknown]
  - Anxiety [Unknown]
  - Oropharyngeal pain [Unknown]
  - Adverse drug reaction [Recovered/Resolved]
  - Bone pain [Unknown]
  - Off label use [Unknown]
